FAERS Safety Report 4377806-0 (Version None)
Quarter: 2004Q2

REPORT INFORMATION
  Report Type: 
  Country: None (occurrence: None)
  Receive Date: 20040615
  Receipt Date: 20040615
  Transmission Date: 20050107
  Serious: Yes (Hospitalization)
  Sender: FDA-Public Use
  Company Number: None

PATIENT
  Sex: Male
  Weight: 78.3 kg

DRUGS (4)
  1. IRESSA [Suspect]
     Indication: METASTASIS
     Dosage: 250 MG DAILY PO
     Route: 048
     Dates: start: 20040305
  2. IRESSA [Suspect]
     Indication: OESOPHAGEAL CARCINOMA
     Dosage: 250 MG DAILY PO
     Route: 048
     Dates: start: 20040305
  3. ADALAT [Suspect]
     Indication: HYPERTENSION
     Dosage: 60 MG DAILY PO
     Route: 048
  4. TOPROL-XL [Suspect]
     Indication: ATRIAL FIBRILLATION
     Dosage: 100 MG DAILY PO
     Route: 048

REACTIONS (4)
  - HYPOMAGNESAEMIA [None]
  - MARKEDLY REDUCED DIETARY INTAKE [None]
  - SYNCOPE [None]
  - TREMOR [None]
